FAERS Safety Report 10202972 (Version 2)
Quarter: 2014Q2

REPORT INFORMATION
  Report Type: Report from Study
  Country: BR (occurrence: BR)
  Receive Date: 20140528
  Receipt Date: 20140620
  Transmission Date: 20141212
  Serious: Yes (Other)
  Sender: FDA-Public Use
  Company Number: PHHY2014BR062619

PATIENT
  Age: 56 Year
  Sex: Male
  Weight: 103 kg

DRUGS (3)
  1. ZOMETA [Suspect]
     Indication: SPINAL DISORDER
     Dosage: 1 DF, EVERY 30 DAYS
     Route: 042
  2. ZOMETA [Suspect]
     Dosage: 1 DF, EVERY 60 DAYS
     Route: 042
     Dates: start: 201403
  3. SANDOSTATIN LAR [Suspect]
     Indication: NEOPLASM MALIGNANT
     Dosage: 1 DF, QMO
     Route: 030
     Dates: start: 201303

REACTIONS (4)
  - Osteonecrosis of jaw [Unknown]
  - Bone loss [Recovering/Resolving]
  - Dysarthria [Recovering/Resolving]
  - Pain in jaw [Recovering/Resolving]
